FAERS Safety Report 10959347 (Version 2)
Quarter: 2015Q1

REPORT INFORMATION
  Report Type: Spontaneous
  Country: FR (occurrence: FR)
  Receive Date: 20150327
  Receipt Date: 20150327
  Transmission Date: 20150721
  Serious: Yes (Other)
  Sender: FDA-Public Use
  Company Number: FR-009507513-1503FRA009756

PATIENT
  Sex: Female
  Weight: 65 kg

DRUGS (1)
  1. NEXPLANON [Suspect]
     Active Substance: ETONOGESTREL
     Indication: CONTRACEPTION
     Dosage: UNK
     Route: 059
     Dates: start: 20141121

REACTIONS (5)
  - Device dislocation [Unknown]
  - Menstruation irregular [Unknown]
  - Medical device complication [Unknown]
  - Device difficult to use [Unknown]
  - Menorrhagia [Unknown]
